FAERS Safety Report 19900604 (Version 1)
Quarter: 2021Q3

REPORT INFORMATION
  Report Type: Spontaneous
  Country: BR (occurrence: BR)
  Receive Date: 20210929
  Receipt Date: 20210929
  Transmission Date: 20211014
  Serious: Yes (Other)
  Sender: FDA-Public Use
  Company Number: BR-BAYER-2021A218791

PATIENT
  Age: 55 Year
  Sex: Female

DRUGS (1)
  1. MIRENA [Suspect]
     Active Substance: LEVONORGESTREL
     Indication: CONTRACEPTION
     Dosage: 20 ?G, CONT
     Dates: start: 20140822

REACTIONS (5)
  - Tumour haemorrhage [None]
  - Menometrorrhagia [None]
  - Device use issue [None]
  - Menstruation irregular [None]
  - Device dislocation [None]

NARRATIVE: CASE EVENT DATE: 2019
